FAERS Safety Report 5754881-X (Version None)
Quarter: 2008Q2

REPORT INFORMATION
  Report Type: 
  Country: None (occurrence: None)
  Receive Date: 20080527
  Receipt Date: 20080507
  Transmission Date: 20081010
  Serious: Yes (Hospitalization)
  Sender: FDA-Public Use
  Company Number: 2008AL003942

PATIENT
  Age: 63 Year
  Sex: Male
  Weight: 91.173 kg

DRUGS (4)
  1. DIGOXIN [Suspect]
     Indication: ATRIAL FIBRILLATION
     Dosage: 0.25MG DAILY PO
     Route: 048
  2. LANOXIN [Concomitant]
  3. ACYCLOVIR SODIUM [Concomitant]
  4. LEVAQUIN [Concomitant]

REACTIONS (3)
  - ABDOMINAL PAIN UPPER [None]
  - HEART RATE DECREASED [None]
  - LOSS OF CONSCIOUSNESS [None]
